FAERS Safety Report 9037098 (Version 1)
Quarter: 2013Q1

REPORT INFORMATION
  Report Type: Spontaneous
  Country: US (occurrence: US)
  Receive Date: 20130129
  Receipt Date: 20130129
  Transmission Date: 20140127
  Serious: No
  Sender: FDA-Public Use
  Company Number: US-009507513-1301USA004853

PATIENT
  Sex: Male

DRUGS (2)
  1. PEG-INTRON [Suspect]
     Indication: HEPATITIS C
     Dosage: UNK
     Dates: start: 20130101
  2. PNEUMOVAX23 [Concomitant]
     Indication: PROPHYLAXIS
     Dates: start: 20130101, end: 20130101

REACTIONS (1)
  - Injection site reaction [Not Recovered/Not Resolved]
